FAERS Safety Report 9780630 (Version 1)
Quarter: 2013Q4

REPORT INFORMATION
  Report Type: Spontaneous
  Country: JP (occurrence: JP)
  Receive Date: 20131224
  Receipt Date: 20131224
  Transmission Date: 20140711
  Serious: Yes (Hospitalization)
  Sender: FDA-Public Use
  Company Number: JP-JNJFOC-20131118415

PATIENT
  Sex: 0

DRUGS (4)
  1. XEPLION [Suspect]
     Indication: PRODUCT USED FOR UNKNOWN INDICATION
     Route: 030
     Dates: start: 20131121
  2. SEROQUEL [Concomitant]
     Route: 048
  3. VEGETAMIN-A [Concomitant]
     Route: 048
  4. ROZEREM [Concomitant]
     Route: 048

REACTIONS (1)
  - Fall [Unknown]
